FAERS Safety Report 4736546-6 (Version None)
Quarter: 2005Q3

REPORT INFORMATION
  Report Type: 
  Country: None (occurrence: None)
  Receive Date: 20050805
  Receipt Date: 20050805
  Transmission Date: 20060218
  Serious: Yes (Hospitalization)
  Sender: FDA-Public Use
  Company Number: None

PATIENT
  Age: 41 Year
  Sex: Female

DRUGS (1)
  1. PAROXETINE - CAPSULE - 20 MG [Suspect]
     Indication: MAJOR DEPRESSION
     Dosage: 20 MG QD ORAL
     Route: 048
     Dates: start: 20050621

REACTIONS (6)
  - ACCIDENT AT WORK [None]
  - CONVULSION [None]
  - FALL [None]
  - HEAD INJURY [None]
  - IMPAIRED DRIVING ABILITY [None]
  - LOSS OF CONSCIOUSNESS [None]
